FAERS Safety Report 15170950 (Version 2)
Quarter: 2018Q4

REPORT INFORMATION
  Report Type: Report from Study
  Country: US (occurrence: US)
  Receive Date: 20180720
  Receipt Date: 20181003
  Transmission Date: 20190204
  Serious: Yes (Disabling)
  Sender: FDA-Public Use
  Company Number: US-SA-2018SA197786

PATIENT
  Age: 19 Year
  Sex: Male

DRUGS (1)
  1. AGALSIDASE BETA [Suspect]
     Active Substance: AGALSIDASE BETA
     Indication: FABRY^S DISEASE
     Dosage: 75 MG Q2
     Route: 041
     Dates: start: 20141023

REACTIONS (3)
  - Walking aid user [Unknown]
  - Product dose omission [Unknown]
  - Pain in extremity [Unknown]
